FAERS Safety Report 9257207 (Version 1)
Quarter: 2013Q1

REPORT INFORMATION
  Report Type: Spontaneous
  Country: US (occurrence: None)
  Receive Date: 20121212
  Receipt Date: 20121212
  Transmission Date: 20140127
  Serious: No
  Sender: FDA-Public Use
  Company Number: 1209USA000430

PATIENT
  Sex: 0

DRUGS (1)
  1. VICTRELIS [Suspect]
     Route: 048

REACTIONS (2)
  - Treatment failure [None]
  - Adverse event [None]
